FAERS Safety Report 10472863 (Version 2)
Quarter: 2014Q4

REPORT INFORMATION
  Report Type: Report from Study
  Country: US (occurrence: US)
  Receive Date: 20140924
  Receipt Date: 20141121
  Transmission Date: 20150528
  Serious: Yes (Other)
  Sender: FDA-Public Use
  Company Number: US-SA-2014SA130317

PATIENT
  Sex: Male

DRUGS (5)
  1. JANUVIA [Concomitant]
     Active Substance: SITAGLIPTIN PHOSPHATE
  2. ANALGESICS [Concomitant]
     Active Substance: UNSPECIFIED INGREDIENT
  3. LANTUS SOLOSTAR [Suspect]
     Active Substance: INSULIN GLARGINE
     Indication: TYPE 2 DIABETES MELLITUS
     Dosage: DOSE:30 UNIT(S)
     Route: 065
  4. CORTISONE [Concomitant]
     Active Substance: CORTISONE\HYDROCORTISONE
  5. SOLOSTAR [Concomitant]
     Active Substance: DEVICE

REACTIONS (7)
  - Drug administration error [Unknown]
  - Knee arthroplasty [Unknown]
  - Musculoskeletal discomfort [Unknown]
  - Pain [Unknown]
  - Glycosylated haemoglobin increased [Unknown]
  - Pain in extremity [Unknown]
  - Musculoskeletal pain [Unknown]
